FAERS Safety Report 22178262 (Version 1)
Quarter: 2023Q2

REPORT INFORMATION
  Report Type: Spontaneous
  Country: ES (occurrence: ES)
  Receive Date: 20230405
  Receipt Date: 20230405
  Transmission Date: 20230721
  Serious: Yes (Other)
  Sender: FDA-Public Use
  Company Number: None

PATIENT
  Age: 62 Year
  Sex: Female

DRUGS (4)
  1. VALSARTAN [Suspect]
     Active Substance: VALSARTAN
     Indication: Product used for unknown indication
     Dosage: 40 MILLIGRAM, BID
     Route: 048
     Dates: start: 20200820
  2. PARACETAMOL CINFA [Concomitant]
     Indication: Chest pain
     Dosage: 1 GRAM, Q8H
     Route: 048
     Dates: start: 20200831
  3. SIMVASTATINA CINFA [Concomitant]
     Indication: Type V hyperlipidaemia
     Dosage: 20 MILLIGRAM, QD
     Route: 048
     Dates: start: 20101129
  4. CHOLECALCIFEROL [Concomitant]
     Active Substance: CHOLECALCIFEROL
     Indication: Product used for unknown indication
     Dosage: 50000 INTERNATIONAL UNIT
     Route: 048
     Dates: start: 20190301

REACTIONS (1)
  - Oral pruritus [Not Recovered/Not Resolved]

NARRATIVE: CASE EVENT DATE: 20201101
